FAERS Safety Report 5356283-7 (Version None)
Quarter: 2007Q2

REPORT INFORMATION
  Report Type: 
  Country: None (occurrence: None)
  Receive Date: 20070613
  Receipt Date: 20070604
  Transmission Date: 20071010
  Serious: Yes (Hospitalization, Other)
  Sender: FDA-Public Use
  Company Number: PHEH2007US08243

PATIENT
  Age: 50 Year
  Sex: Male

DRUGS (11)
  1. LOPRESSOR [Suspect]
     Indication: ATRIAL FIBRILLATION
     Dosage: 25 MG, QD
  2. LOPRESSOR [Suspect]
     Dosage: 50 MG, BID
     Dates: start: 20070204
  3. BIBF 1120 [Suspect]
     Indication: NON-SMALL CELL LUNG CANCER
     Dates: start: 20061214, end: 20070204
  4. PACLITAXEL + CARBOPLATIN [Concomitant]
     Dates: end: 20070122
  5. CALCIUM CITRATE [Concomitant]
  6. PRENATAL VITAMINS [Concomitant]
  7. IRON SUPPLEMENTS [Concomitant]
  8. LISINOPRIL [Concomitant]
  9. ULTRAM [Concomitant]
  10. PREVACID [Concomitant]
  11. ALBUTEROL [Concomitant]

REACTIONS (24)
  - ANOREXIA [None]
  - ASTHENIA [None]
  - ATRIAL FIBRILLATION [None]
  - ATRIAL FLUTTER [None]
  - BUNDLE BRANCH BLOCK RIGHT [None]
  - CHEST DISCOMFORT [None]
  - CHILLS [None]
  - COUGH [None]
  - ELECTROCARDIOGRAM ABNORMAL [None]
  - ELECTROCARDIOGRAM REPOLARISATION ABNORMALITY [None]
  - ELECTROCARDIOGRAM T WAVE ABNORMAL [None]
  - FATIGUE [None]
  - HEART RATE INCREASED [None]
  - HYPOTENSION [None]
  - LUNG NEOPLASM [None]
  - MYALGIA [None]
  - PALPITATIONS [None]
  - PRODUCTIVE COUGH [None]
  - PROTEIN URINE PRESENT [None]
  - PYREXIA [None]
  - SINUS TACHYCARDIA [None]
  - URINE BILIRUBIN INCREASED [None]
  - URINE KETONE BODY PRESENT [None]
  - VENTRICULAR HYPERTROPHY [None]
